FAERS Safety Report 17180736 (Version 1)
Quarter: 2019Q4

REPORT INFORMATION
  Report Type: Spontaneous
  Country: US (occurrence: US)
  Receive Date: 20191219
  Receipt Date: 20191219
  Transmission Date: 20200122
  Serious: Yes (Other)
  Sender: FDA-Public Use
  Company Number: US-PFIZER INC-2019540196

PATIENT
  Age: 68 Year
  Sex: Male
  Weight: 65 kg

DRUGS (4)
  1. CLARITHROMYCIN. [Concomitant]
     Active Substance: CLARITHROMYCIN
     Dosage: 500 MG, 2X/DAY
  2. RIFABUTIN. [Suspect]
     Active Substance: RIFABUTIN
     Dosage: 300 MG, DAILY
  3. RIFABUTIN. [Suspect]
     Active Substance: RIFABUTIN
     Dosage: 600 MG, DAILY
  4. ETHAMBUTOL [Concomitant]
     Active Substance: ETHAMBUTOL HYDROCHLORIDE
     Dosage: 1600 MG, DAILY

REACTIONS (2)
  - Inappropriate antidiuretic hormone secretion [Unknown]
  - Leukopenia [Recovering/Resolving]
